FAERS Safety Report 4965398-4 (Version None)
Quarter: 2006Q2

REPORT INFORMATION
  Report Type: 
  Country: None (occurrence: None)
  Receive Date: 20060406
  Receipt Date: 20060323
  Transmission Date: 20061013
  Serious: Yes (Hospitalization)
  Sender: FDA-Public Use
  Company Number: DE-MERCK-0603DEU00158

PATIENT
  Age: 86 Year
  Sex: Male

DRUGS (4)
  1. PROSCAR [Suspect]
     Indication: BENIGN PROSTATIC HYPERPLASIA
     Route: 048
     Dates: start: 20060309, end: 20060311
  2. RESERPINE [Concomitant]
     Route: 065
  3. ALLOPURINOL [Concomitant]
     Route: 065
  4. GLYBURIDE [Concomitant]
     Route: 065

REACTIONS (4)
  - ARRHYTHMIA [None]
  - ATRIOVENTRICULAR BLOCK COMPLETE [None]
  - ATRIOVENTRICULAR BLOCK SECOND DEGREE [None]
  - HEART RATE DECREASED [None]
